FAERS Safety Report 6175881-4 (Version None)
Quarter: 2009Q2

REPORT INFORMATION
  Report Type: 
  Country: None (occurrence: None)
  Receive Date: 20090501
  Receipt Date: 20090421
  Transmission Date: 20091009
  Serious: Yes (Hospitalization, Other)
  Sender: FDA-Public Use
  Company Number: US-PFIZER INC-2009178198

PATIENT
  Sex: Female

DRUGS (3)
  1. CHANTIX [Suspect]
     Indication: SMOKING CESSATION THERAPY
     Dosage: UNKNOWN
     Dates: start: 20090201, end: 20090201
  2. LANTUS [Concomitant]
     Dosage: UNKNOWN
  3. GLUCOPHAGE [Concomitant]
     Dosage: UNKNOWN

REACTIONS (4)
  - ANAEMIA [None]
  - CONFUSIONAL STATE [None]
  - THROMBOTIC THROMBOCYTOPENIC PURPURA [None]
  - VON WILLEBRAND'S DISEASE [None]
